FAERS Safety Report 15218019 (Version 2)
Quarter: 2018Q3

REPORT INFORMATION
  Report Type: Spontaneous
  Country: DE (occurrence: DE)
  Receive Date: 20180730
  Receipt Date: 20180928
  Transmission Date: 20181010
  Serious: Yes (Hospitalization, Other)
  Sender: FDA-Public Use
  Company Number: DE-AMGEN-DEUSP2018102414

PATIENT
  Age: 74 Year
  Sex: Male
  Weight: 68 kg

DRUGS (6)
  1. LOPERAMID [Concomitant]
     Active Substance: LOPERAMIDE
     Indication: DIARRHOEA
     Dosage: UNK UNK, AS NECESSARY
     Route: 048
  2. KYPROLIS [Suspect]
     Active Substance: CARFILZOMIB
     Dosage: 20 MG/M2 (82 MG), ON DAY 8, 9, 15 AND 16
     Route: 042
     Dates: start: 20170427
  3. MCP [Concomitant]
     Active Substance: METOCLOPRAMIDE HYDROCHLORIDE
     Indication: NAUSEA
     Dosage: UNK UNK, TID (1?1?1) AS NEEDED
     Route: 048
  4. KYPROLIS [Suspect]
     Active Substance: CARFILZOMIB
     Indication: PLASMA CELL MYELOMA
     Dosage: 20 MG/M2 (37 MG), ON DAY 1 AND 2
     Route: 042
     Dates: start: 201704, end: 201704
  5. ACICLOVIR [Concomitant]
     Active Substance: ACYCLOVIR
     Indication: HERPES VIRUS INFECTION
     Dosage: 400 MG, BID (1?0?1) (3 WEEKS AFTER KYPROLIS)
     Route: 048
  6. DEXAMETHASONE. [Concomitant]
     Active Substance: DEXAMETHASONE
     Indication: PLASMA CELL MYELOMA
     Dosage: 40 MG, ON DAY 1, 8, 15, 22
     Route: 048
     Dates: start: 201704

REACTIONS (1)
  - Cardiomyopathy [Recovered/Resolved]

NARRATIVE: CASE EVENT DATE: 20170428
